FAERS Safety Report 25834617 (Version 2)
Quarter: 2025Q4

REPORT INFORMATION
  Report Type: Spontaneous
  Country: EU (occurrence: EU)
  Receive Date: 20250923
  Receipt Date: 20251223
  Transmission Date: 20260117
  Serious: Yes (Other)
  Sender: MSN LABORATORIES PRIVATE LIMITED
  Company Number: EU-SUN PHARMACEUTICAL INDUSTRIES INC-2025R1-512463

PATIENT

DRUGS (27)
  1. ROSUVASTATIN [Suspect]
     Active Substance: ROSUVASTATIN
     Indication: Ischaemic stroke
     Route: 065
  2. ROSUVASTATIN [Suspect]
     Active Substance: ROSUVASTATIN
     Indication: Cardiac failure
  3. ROSUVASTATIN [Suspect]
     Active Substance: ROSUVASTATIN
     Indication: Sleep disorder
  4. APIXABAN [Suspect]
     Active Substance: APIXABAN
     Indication: Atrial fibrillation
     Route: 065
  5. DAPAGLIFLOZIN [Suspect]
     Active Substance: DAPAGLIFLOZIN
     Indication: Ischaemic stroke
     Route: 065
  6. DAPAGLIFLOZIN [Suspect]
     Active Substance: DAPAGLIFLOZIN
     Indication: Cardiac failure
  7. DAPAGLIFLOZIN [Suspect]
     Active Substance: DAPAGLIFLOZIN
     Indication: Sleep disorder
  8. AMIODARONE [Suspect]
     Active Substance: AMIODARONE
     Indication: Atrial fibrillation
     Dosage: 400 MILLIGRAM, QD
     Route: 048
  9. ASPIRIN [Suspect]
     Active Substance: ASPIRIN
     Indication: Ischaemic stroke
     Route: 065
  10. ASPIRIN [Suspect]
     Active Substance: ASPIRIN
     Indication: Cardiac failure
  11. ASPIRIN [Suspect]
     Active Substance: ASPIRIN
     Indication: Sleep disorder
  12. METOPROLOL [Suspect]
     Active Substance: METOPROLOL
     Indication: Atrial fibrillation
     Dosage: 50 MILLIGRAM, BID
     Route: 048
  13. METOPROLOL [Suspect]
     Active Substance: METOPROLOL
     Indication: Ischaemic stroke
  14. METOPROLOL [Suspect]
     Active Substance: METOPROLOL
     Indication: Cardiac failure
  15. METOPROLOL [Suspect]
     Active Substance: METOPROLOL
     Indication: Sleep disorder
  16. PANTOPRAZOLE [Suspect]
     Active Substance: PANTOPRAZOLE
     Indication: Ischaemic stroke
     Route: 065
  17. PANTOPRAZOLE [Suspect]
     Active Substance: PANTOPRAZOLE
     Indication: Cardiac failure
  18. PANTOPRAZOLE [Suspect]
     Active Substance: PANTOPRAZOLE
     Indication: Sleep disorder
  19. RAMIPRIL [Suspect]
     Active Substance: RAMIPRIL
     Indication: Atrial fibrillation
     Route: 065
  20. RAMIPRIL [Suspect]
     Active Substance: RAMIPRIL
     Indication: Ischaemic stroke
  21. RAMIPRIL [Suspect]
     Active Substance: RAMIPRIL
     Indication: Sleep disorder
  22. RAMIPRIL [Suspect]
     Active Substance: RAMIPRIL
     Indication: Cardiac failure
  23. TORSEMIDE [Suspect]
     Active Substance: TORSEMIDE
     Indication: Ischaemic stroke
     Route: 065
  24. TORSEMIDE [Suspect]
     Active Substance: TORSEMIDE
     Indication: Cardiac failure
  25. TORSEMIDE [Suspect]
     Active Substance: TORSEMIDE
     Indication: Sleep disorder
  26. TRAMADOL [Suspect]
     Active Substance: TRAMADOL
     Indication: Back pain
     Dosage: 100 MILLIGRAM, TID
     Route: 048
  27. ESTAZOLAM [Concomitant]
     Active Substance: ESTAZOLAM
     Indication: Insomnia
     Dosage: 4 MG FOR THE NIGHT
     Route: 065

REACTIONS (8)
  - Arrhythmia [Unknown]
  - Drug-disease interaction [Unknown]
  - Disease risk factor [Unknown]
  - Drug interaction [Unknown]
  - Vomiting [Unknown]
  - Nausea [Unknown]
  - Electrolyte imbalance [Unknown]
  - Dehydration [Unknown]
